FAERS Safety Report 6849237-2 (Version None)
Quarter: 2010Q3

REPORT INFORMATION
  Report Type: 
  Country: None (occurrence: None)
  Receive Date: 20100716
  Receipt Date: 20100709
  Transmission Date: 20110219
  Serious: Yes (Hospitalization)
  Sender: FDA-Public Use
  Company Number: JP-PFIZER INC-2010086154

PATIENT
  Sex: Female

DRUGS (2)
  1. AZULFIDINE [Suspect]
     Route: 048
  2. ETANERCEPT [Suspect]
     Dosage: UNK
     Route: 058

REACTIONS (3)
  - GENERAL PHYSICAL HEALTH DETERIORATION [None]
  - PNEUMONIA [None]
  - PYREXIA [None]
